FAERS Safety Report 5727593-6 (Version None)
Quarter: 2008Q2

REPORT INFORMATION
  Report Type: 
  Country: None (occurrence: None)
  Receive Date: 20080505
  Receipt Date: 20080430
  Transmission Date: 20081010
  Serious: Yes (Death, Hospitalization)
  Sender: FDA-Public Use
  Company Number: DE-BRISTOL-MYERS SQUIBB COMPANY-13996541

PATIENT
  Age: 51 Year
  Sex: Male

DRUGS (4)
  1. ABILIFY [Suspect]
     Indication: PSYCHOTIC DISORDER
     Route: 048
     Dates: start: 20050307, end: 20060101
  2. CLOZAPINE [Suspect]
  3. CLOZAPINE [Concomitant]
     Dosage: 2 DOSAGE FORM=2 TABS,DURATION:}10YRS,RECENT DOSE:100MG
  4. TIAPRIDE [Concomitant]
     Dosage: DOSAGE FORM=TABS,DURATION:}5YRS.

REACTIONS (3)
  - CHOKING [None]
  - PSYCHOTIC DISORDER [None]
  - RESTLESSNESS [None]
